FAERS Safety Report 8075117-3 (Version None)
Quarter: 2012Q1

REPORT INFORMATION
  Report Type: 
  Country: None (occurrence: None)
  Receive Date: 20120127
  Receipt Date: 20120123
  Transmission Date: 20120608
  Serious: No
  Sender: FDA-Public Use
  Company Number: US-BIOGENIDEC-2012BI002777

PATIENT
  Age: 49 Year
  Sex: Female

DRUGS (1)
  1. TYSABRI [Suspect]
     Indication: MULTIPLE SCLEROSIS
     Route: 042
     Dates: start: 20071004

REACTIONS (8)
  - BALANCE DISORDER [None]
  - FATIGUE [None]
  - VISUAL IMPAIRMENT [None]
  - POOR VENOUS ACCESS [None]
  - HEADACHE [None]
  - FEELING ABNORMAL [None]
  - NASOPHARYNGITIS [None]
  - NAUSEA [None]
